FAERS Safety Report 7901332-2 (Version None)
Quarter: 2011Q4

REPORT INFORMATION
  Report Type: 
  Country: None (occurrence: None)
  Receive Date: 20111108
  Receipt Date: 20111103
  Transmission Date: 20120403
  Serious: Yes (Hospitalization, Other)
  Sender: FDA-Public Use
  Company Number: PHHY2011VE097552

PATIENT
  Sex: Female

DRUGS (7)
  1. ZOLEDRONOC ACID [Suspect]
     Indication: OSTEOPOROSIS
     Dosage: 5 MG, ONCE IN A YEAR
     Route: 042
     Dates: start: 20101020
  2. ARANDA [Concomitant]
     Dosage: 1 DF, 1 PILL DAILY
  3. FORTEO [Concomitant]
     Indication: BONE DISORDER
     Dosage: 1 DF, DAILY
  4. FLEXURE [Concomitant]
     Indication: OSTEOARTHRITIS
     Dosage: 1 DF, ONE ENVELOPE DAILY
  5. TAPAZOL [Concomitant]
     Indication: THYROID DISORDER
     Dosage: 2 DF,  2 PILL DAILY
  6. CALCIBON D [Concomitant]
     Dosage: 1 DF, 1 PILL DAILY
  7. OMEPRAZOLE [Concomitant]
     Indication: GASTRIC DISORDER
     Dosage: 2 DF, 2 PILLS DAILY

REACTIONS (9)
  - MENISCUS LESION [None]
  - DIZZINESS [None]
  - VOMITING [None]
  - EPISTAXIS [None]
  - LIP DRY [None]
  - UPPER LIMB FRACTURE [None]
  - HYPERTENSION [None]
  - GASTRITIS [None]
  - ARTHRALGIA [None]
